FAERS Safety Report 6582074-5 (Version None)
Quarter: 2010Q1

REPORT INFORMATION
  Report Type: 
  Country: None (occurrence: None)
  Receive Date: 20100216
  Receipt Date: 20100212
  Transmission Date: 20100710
  Serious: Yes (Other)
  Sender: FDA-Public Use
  Company Number: US-ASTRAZENECA-2009UW03038

PATIENT
  Age: 25 Year
  Sex: Male
  Weight: 86.2 kg

DRUGS (43)
  1. SEROQUEL [Suspect]
     Indication: PSYCHOTIC DISORDER
     Route: 048
     Dates: start: 20020101, end: 20060101
  2. SEROQUEL [Suspect]
     Route: 048
     Dates: start: 20031101
  3. SEROQUEL [Suspect]
     Route: 048
     Dates: start: 20041201
  4. SEROQUEL [Suspect]
     Dosage: PRN, 25 TO 100 MG BID
     Route: 048
     Dates: start: 20041123, end: 20041123
  5. SEROQUEL [Suspect]
     Route: 048
     Dates: start: 20050219
  6. SEROQUEL [Suspect]
     Route: 048
  7. SEROQUEL [Suspect]
     Dosage: 200MG- 400 MG
     Route: 048
     Dates: start: 20060308
  8. PAXIL [Concomitant]
     Dates: start: 20041123, end: 20050103
  9. ATIVAN [Concomitant]
  10. CYMBALTA [Concomitant]
     Indication: BIPOLAR I DISORDER
     Route: 048
     Dates: start: 20060621
  11. CYMBALTA [Concomitant]
     Route: 048
     Dates: start: 20061114
  12. TRAZODONE [Concomitant]
     Indication: SLEEP DISORDER
     Route: 048
     Dates: start: 20061114
  13. RISPERDAL [Concomitant]
     Indication: SCHIZOAFFECTIVE DISORDER
     Route: 048
     Dates: start: 20050718
  14. RISPERDAL [Concomitant]
     Route: 048
     Dates: start: 20050801
  15. RISPERDAL [Concomitant]
     Route: 048
     Dates: start: 20060718
  16. RISPERDAL [Concomitant]
     Dosage: 1/2 TABLET AT NIGHT AND 1/2 TABLET DAYTIME
     Dates: start: 20090216
  17. RISPERDAL [Concomitant]
     Route: 048
     Dates: start: 20061114
  18. LEXAPRO [Concomitant]
     Indication: DEPRESSION
     Dates: start: 20031101
  19. LEXAPRO [Concomitant]
     Dates: start: 20050201
  20. KLONOPIN [Concomitant]
     Indication: GENERALISED ANXIETY DISORDER
     Dates: start: 20031101
  21. KLONOPIN [Concomitant]
     Dosage: 1 MG, 2 MG
     Dates: start: 20041230
  22. KLONOPIN [Concomitant]
     Dosage: 1 MG TABLET DOSE 1.5 FREQUENCY TID
     Route: 048
     Dates: start: 20060621
  23. KLONOPIN [Concomitant]
     Route: 048
     Dates: start: 20061114
  24. XANAX [Concomitant]
     Indication: PANIC ATTACK
     Dates: start: 20041101
  25. XANAX [Concomitant]
     Indication: ANXIETY
     Dates: start: 20041101
  26. XANAX [Concomitant]
     Dosage: 0.5 MG, 1MG
     Dates: start: 20050219
  27. XANAX [Concomitant]
     Dosage: 0.5 MG, 1MG
     Dates: start: 20050219
  28. XANAX [Concomitant]
     Dates: end: 20050103
  29. XANAX [Concomitant]
     Dates: end: 20050103
  30. XANAX [Concomitant]
     Dates: start: 20090216
  31. XANAX [Concomitant]
     Dates: start: 20090216
  32. GABAPENTIN [Concomitant]
     Dates: start: 20090216
  33. PROPRANOLOL [Concomitant]
     Dates: start: 20090216
  34. LAMICTAL [Concomitant]
     Dosage: 1/2 TABLET IN MORNING AND 1 TABLET AT BED
  35. BACLOFEN [Concomitant]
     Dates: start: 20090216
  36. OXYCODONE HCL [Concomitant]
     Dates: start: 20090216
  37. FENOFIBRATE [Concomitant]
     Dates: start: 20090216
  38. FLEXERIL [Concomitant]
     Indication: BACK PAIN
     Route: 048
     Dates: start: 20060621
  39. COGENTIN [Concomitant]
     Route: 048
     Dates: start: 20060222
  40. ABILIFY [Concomitant]
  41. GEODON [Concomitant]
  42. THORAZINE [Concomitant]
  43. ALPRAZOLAM [Concomitant]
     Indication: PANIC ATTACK
     Dates: start: 20031101

REACTIONS (6)
  - CONVULSION [None]
  - DIABETES MELLITUS [None]
  - INSOMNIA [None]
  - LOSS OF CONSCIOUSNESS [None]
  - SUICIDAL IDEATION [None]
  - TYPE 2 DIABETES MELLITUS [None]
